FAERS Safety Report 24212279 (Version 1)
Quarter: 2024Q3

REPORT INFORMATION
  Report Type: Spontaneous
  Country: US (occurrence: US)
  Receive Date: 20240815
  Receipt Date: 20240815
  Transmission Date: 20241016
  Serious: No
  Sender: TEVA
  Company Number: US-TEVA-VS-3229391

PATIENT
  Age: 72 Year
  Sex: Female

DRUGS (4)
  1. AJOVY [Suspect]
     Active Substance: FREMANEZUMAB-VFRM
     Indication: Migraine
     Dosage: 225/1.5 MG/ML, UNDER THE SKIN ONCE ^Q 4 WEEKS
     Route: 065
  2. AJOVY [Suspect]
     Active Substance: FREMANEZUMAB-VFRM
     Dosage: UNDER THE SKIN
     Route: 065
  3. AJOVY [Suspect]
     Active Substance: FREMANEZUMAB-VFRM
  4. AJOVY [Suspect]
     Active Substance: FREMANEZUMAB-VFRM

REACTIONS (3)
  - Tremor [Unknown]
  - Product use complaint [Unknown]
  - Inappropriate schedule of product administration [Unknown]
